FAERS Safety Report 9049739 (Version 1)
Quarter: 2013Q1

REPORT INFORMATION
  Report Type: Spontaneous
  Country: GB (occurrence: GB)
  Receive Date: 20130204
  Receipt Date: 20130204
  Transmission Date: 20140127
  Serious: Yes (Hospitalization, Other)
  Sender: FDA-Public Use
  Company Number: GB-ALLERGAN-1217103US

PATIENT
  Age: 89 Year
  Sex: Female

DRUGS (1)
  1. OZURDEX [Suspect]
     Indication: RETINAL VEIN OCCLUSION
     Dosage: 0.7 MG, SINGLE
     Route: 031
     Dates: start: 20121011, end: 20121011

REACTIONS (3)
  - Cellulitis orbital [Recovered/Resolved with Sequelae]
  - Endophthalmitis [Recovered/Resolved with Sequelae]
  - Urinary tract infection [Unknown]
